FAERS Safety Report 23905575 (Version 2)
Quarter: 2024Q2

REPORT INFORMATION
  Report Type: Spontaneous
  Country: CN (occurrence: CN)
  Receive Date: 20240527
  Receipt Date: 20240529
  Transmission Date: 20240716
  Serious: Yes (Other)
  Sender: FDA-Public Use
  Company Number: CN-PFIZER INC-PV202400067959

PATIENT
  Age: 49 Year
  Sex: Male

DRUGS (9)
  1. CYTARABINE [Suspect]
     Active Substance: CYTARABINE
     Indication: Acute myeloid leukaemia
     Dosage: 0.1 G (100 MG), TWICE A DAY
     Route: 058
     Dates: start: 20240405, end: 20240409
  2. CYTARABINE [Suspect]
     Active Substance: CYTARABINE
     Indication: Chemotherapy
     Dosage: 1.8 G (1800 MG)
     Route: 040
     Dates: start: 20240410, end: 20240412
  3. CYTARABINE [Suspect]
     Active Substance: CYTARABINE
     Dosage: 0.05 G (50 MG)
     Route: 037
     Dates: start: 20240411, end: 20240411
  4. VENETOCLAX [Suspect]
     Active Substance: VENETOCLAX
     Indication: Acute myeloid leukaemia
     Dosage: 0.1 G (100 MG), ONCE A DAY
     Route: 048
     Dates: start: 20240408, end: 20240409
  5. VENETOCLAX [Suspect]
     Active Substance: VENETOCLAX
     Dosage: 0.2 G (200 MG)
     Route: 048
     Dates: start: 20240410, end: 20240416
  6. OMACETAXINE MEPESUCCINATE [Suspect]
     Active Substance: OMACETAXINE MEPESUCCINATE
     Indication: Acute myeloid leukaemia
     Dosage: 0.004 G (4 MG), ONCE A DAY
     Route: 041
     Dates: start: 20240405, end: 20240410
  7. SODIUM CHLORIDE [Concomitant]
     Active Substance: SODIUM CHLORIDE
     Indication: Vehicle solution use
     Dosage: 40 ML
     Route: 040
     Dates: start: 20240410, end: 20240412
  8. SODIUM CHLORIDE [Concomitant]
     Active Substance: SODIUM CHLORIDE
     Dosage: 2 ML
     Route: 037
     Dates: start: 20240411, end: 20240411
  9. DEXTROSE [Concomitant]
     Active Substance: DEXTROSE\DEXTROSE MONOHYDRATE
     Indication: Vehicle solution use
     Dosage: 500 ML
     Route: 041
     Dates: start: 20240405, end: 20240410

REACTIONS (3)
  - Blood potassium increased [Recovering/Resolving]
  - Blood phosphorus increased [Recovering/Resolving]
  - Blood uric acid increased [Recovering/Resolving]

NARRATIVE: CASE EVENT DATE: 20240406
